FAERS Safety Report 12431915 (Version 1)
Quarter: 2016Q2

REPORT INFORMATION
  Report Type: Spontaneous
  Country: VE (occurrence: VE)
  Receive Date: 20160603
  Receipt Date: 20160603
  Transmission Date: 20160815
  Serious: Yes (Other)
  Sender: FDA-Public Use
  Company Number: PHHY2016VE076295

PATIENT
  Age: 81 Year
  Sex: Male

DRUGS (3)
  1. AMLODIPINE [Concomitant]
     Active Substance: AMLODIPINE BESYLATE
     Indication: HYPERTENSION
     Dosage: 5 OR 10 MG, QD (DEPENDING ON THE DOSE HE WAS ABLE TO GET)
     Route: 065
     Dates: start: 201604
  2. ONBREZ BREEZHALER [Suspect]
     Active Substance: INDACATEROL
     Indication: ASTHMA
     Dosage: 300 UG, QD
     Route: 055
     Dates: start: 201512
  3. SEEBRI BREEZHALER [Suspect]
     Active Substance: GLYCOPYRROLATE
     Indication: ASTHMA
     Dosage: 1 DF, QD
     Route: 055
     Dates: start: 20160427

REACTIONS (6)
  - Influenza [Unknown]
  - Respiratory failure [Unknown]
  - Asthmatic crisis [Recovered/Resolved]
  - Drug ineffective [Unknown]
  - Wheezing [Unknown]
  - Product use issue [Unknown]

NARRATIVE: CASE EVENT DATE: 20160427
